FAERS Safety Report 7434342-2 (Version None)
Quarter: 2011Q2

REPORT INFORMATION
  Report Type: 
  Country: None (occurrence: None)
  Receive Date: 20110425
  Receipt Date: 20060123
  Transmission Date: 20111010
  Serious: Yes (Hospitalization)
  Sender: FDA-Public Use
  Company Number: 2006PV007451

PATIENT
  Age: 46 Year
  Sex: Female
  Weight: 68.4932 kg

DRUGS (4)
  1. BYETTA [Suspect]
     Indication: INSULIN RESISTANCE
     Dosage: 10 MCG;BID;SC, 5 MCG;BID;SC
     Route: 058
     Dates: start: 20051101, end: 20051201
  2. BYETTA [Suspect]
     Indication: INSULIN RESISTANCE
     Dosage: 10 MCG;BID;SC, 5 MCG;BID;SC
     Route: 058
     Dates: start: 20051201, end: 20060116
  3. BIRTH CONTROL MEDICATION [Concomitant]
  4. GLUCOPHAGE [Concomitant]

REACTIONS (3)
  - HYPOTENSION [None]
  - PANCREATITIS NECROTISING [None]
  - HEPATIC ENZYME INCREASED [None]
